APPROVED DRUG PRODUCT: SEVELAMER HYDROCHLORIDE
Active Ingredient: SEVELAMER HYDROCHLORIDE
Strength: 800MG
Dosage Form/Route: TABLET;ORAL
Application: A218966 | Product #001 | TE Code: AB
Applicant: NAVINTA LLC
Approved: Feb 3, 2025 | RLD: No | RS: No | Type: RX